FAERS Safety Report 8152940-8 (Version None)
Quarter: 2012Q1

REPORT INFORMATION
  Report Type: 
  Country: None (occurrence: None)
  Receive Date: 20120221
  Receipt Date: 20120216
  Transmission Date: 20120608
  Serious: Yes (Life-Threatening, Hospitalization)
  Sender: FDA-Public Use
  Company Number: JP-ABBOTT-11P-087-0698026-00

PATIENT
  Sex: Male
  Weight: 29.6 kg

DRUGS (12)
  1. LEVOFLOXACIN HYDRATE [Concomitant]
     Indication: CROHN'S DISEASE
     Dosage: 500MG DAILY
     Route: 048
     Dates: end: 20110105
  2. HUMIRA [Suspect]
     Indication: CROHN'S DISEASE
     Route: 058
     Dates: start: 20101125, end: 20101125
  3. HUMIRA [Suspect]
     Dates: start: 20101209, end: 20101209
  4. ACETAMINOPHEN [Concomitant]
     Indication: PYREXIA
     Dosage: 1.5GRAM DAILY
     Dates: end: 20110105
  5. TEPRENONE [Concomitant]
  6. PREDNISOLONE [Concomitant]
     Indication: CROHN'S DISEASE
     Dosage: 5MG DAILY
     Route: 048
  7. ZOLPIDEM TARTRATE [Concomitant]
     Indication: INSOMNIA
  8. AZATHIOPRINE [Concomitant]
     Indication: CROHN'S DISEASE
     Dosage: 50MG DAILY
     Route: 048
     Dates: end: 20110105
  9. LEVOFLOXACIN HYDRATE [Concomitant]
     Indication: ANAL FISTULA
  10. TEPRENONE [Concomitant]
     Indication: GASTRITIS PROPHYLAXIS
     Dosage: 150MG DAILY
     Dates: end: 20110105
  11. ZOLPIDEM TARTRATE [Concomitant]
     Indication: PROPHYLAXIS
     Dosage: 10MG DAILY
     Dates: end: 20110105
  12. HUMIRA [Suspect]
     Dates: start: 20101223, end: 20101223

REACTIONS (4)
  - DRUG INEFFECTIVE [None]
  - ANAL HAEMORRHAGE [None]
  - ANAL ABSCESS [None]
  - ANORECTAL VARICES HAEMORRHAGE [None]
